FAERS Safety Report 9184457 (Version 1)
Quarter: 2013Q1

REPORT INFORMATION
  Report Type: Spontaneous
  Country: CA (occurrence: CA)
  Receive Date: 20130322
  Receipt Date: 20130322
  Transmission Date: 20140127
  Serious: Yes (Other)
  Sender: FDA-Public Use
  Company Number: CA-ELI_LILLY_AND_COMPANY-CA201303004785

PATIENT
  Age: 75 Year
  Sex: Female

DRUGS (9)
  1. FORTEO [Suspect]
     Indication: OSTEOPOROSIS
     Dosage: 20 UG, QD
     Route: 058
     Dates: start: 20130311, end: 20130313
  2. CALCIUM [Concomitant]
  3. OMEPRAZOLE [Concomitant]
  4. METHOTREXATE [Concomitant]
  5. UNIPHYL [Concomitant]
  6. EURO FOLIC [Concomitant]
  7. CYCLOBENZAPRINE [Concomitant]
  8. FLOVENT [Concomitant]
  9. PREDNISONE [Concomitant]

REACTIONS (6)
  - Oxygen saturation decreased [Not Recovered/Not Resolved]
  - Chills [Not Recovered/Not Resolved]
  - Tremor [Not Recovered/Not Resolved]
  - Product contamination [Unknown]
  - Cough [Not Recovered/Not Resolved]
  - Dyspnoea [Not Recovered/Not Resolved]
